FAERS Safety Report 25922673 (Version 1)
Quarter: 2025Q4

REPORT INFORMATION
  Report Type: Other
  Country: GB (occurrence: GB)
  Receive Date: 20251015
  Receipt Date: 20251015
  Transmission Date: 20260118
  Serious: Yes (Other)
  Sender: STRIDES
  Company Number: None

PATIENT
  Age: 14 Year
  Sex: Female
  Weight: 70 kg

DRUGS (2)
  1. METHYLPHENIDATE [Suspect]
     Active Substance: METHYLPHENIDATE
     Indication: Ill-defined disorder
     Dosage: TABLET/TAKE ONE IN THE MORNING, AND ANOTHER AT LUNCHTIME
     Route: 065
     Dates: start: 20250416, end: 20250516
  2. METHYLPHENIDATE HYDROCHLORIDE [Concomitant]
     Active Substance: METHYLPHENIDATE HYDROCHLORIDE
     Indication: Ill-defined disorder
     Dosage: 1 DOSAGE FORM, QD
     Route: 065
     Dates: start: 20250416

REACTIONS (4)
  - Anxiety [Recovered/Resolved]
  - Feeling hot [Unknown]
  - Rash [Unknown]
  - Swelling [Unknown]
